FAERS Safety Report 4814991-8 (Version None)
Quarter: 2005Q4

REPORT INFORMATION
  Report Type: 
  Country: None (occurrence: None)
  Receive Date: 20051026
  Receipt Date: 20051012
  Transmission Date: 20060501
  Serious: Yes (Hospitalization, Other)
  Sender: FDA-Public Use
  Company Number: FR_050606606

PATIENT
  Age: 53 Year
  Sex: Female
  Weight: 60 kg

DRUGS (1)
  1. EVISTA [Suspect]
     Indication: OSTEOPOROSIS
     Dosage: 60 MG DAY
     Dates: start: 20041102, end: 20050713

REACTIONS (2)
  - CEREBRAL ISCHAEMIA [None]
  - MENINGIOMA BENIGN [None]
